FAERS Safety Report 18456590 (Version 1)
Quarter: 2020Q4

REPORT INFORMATION
  Report Type: Spontaneous
  Country: US (occurrence: US)
  Receive Date: 20201103
  Receipt Date: 20201103
  Transmission Date: 20210114
  Serious: Yes (Other)
  Sender: FDA-Public Use
  Company Number: US-STRIDES ARCOLAB LIMITED-2020SP013077

PATIENT
  Age: 70 Year
  Sex: Male

DRUGS (1)
  1. HYDRALAZINE HCL [Suspect]
     Active Substance: HYDRALAZINE HYDROCHLORIDE
     Indication: HYPERTENSION
     Dosage: 100 MILLIGRAM, TID
     Route: 065

REACTIONS (14)
  - Pulmonary mass [Recovered/Resolved]
  - Lupus vasculitis [Recovered/Resolved]
  - Dyspnoea [Recovered/Resolved]
  - Anaemia [Recovered/Resolved]
  - Pulmonary fibrosis [Recovered/Resolved]
  - Eosinophilia [Recovered/Resolved]
  - Acute kidney injury [Recovered/Resolved]
  - Nephritic syndrome [Recovered/Resolved]
  - Hypocomplementaemia [Recovered/Resolved]
  - Pneumonia [Recovered/Resolved]
  - Renal tubular necrosis [Recovered/Resolved]
  - Haemoptysis [Recovered/Resolved]
  - Hypoxia [Recovered/Resolved]
  - Pulmonary alveolar haemorrhage [Recovered/Resolved]
